FAERS Safety Report 9231088 (Version 1)
Quarter: 2013Q2

REPORT INFORMATION
  Report Type: Spontaneous
  Country: ES (occurrence: ES)
  Receive Date: 20130415
  Receipt Date: 20130415
  Transmission Date: 20140414
  Serious: Yes (Hospitalization)
  Sender: FDA-Public Use
  Company Number: PHHY2013ES034020

PATIENT
  Age: 76 Year
  Sex: Female

DRUGS (8)
  1. SINTROM [Suspect]
     Indication: HYPERCOAGULATION
     Dosage: 4 MG, UNK
     Route: 048
     Dates: end: 20130218
  2. AMOXICILLIN AND CLAVULANATE [Interacting]
     Indication: RESPIRATORY TRACT INFECTION
     Dosage: 3 DF, TID
     Route: 048
     Dates: start: 201302
  3. ALGIDOL [Interacting]
     Indication: RESPIRATORY TRACT INFECTION
     Dosage: 3 DF, TID
     Route: 048
     Dates: start: 201302, end: 20130218
  4. ATORVASTATIN [Concomitant]
     Dosage: UNK UKN, UNK
  5. SEROXAT [Concomitant]
     Dosage: UNK UKN, UNK
  6. OMEPRAZOL [Concomitant]
     Dosage: UNK UKN, UNK
  7. TRILEPTAL [Concomitant]
     Dosage: UNK UKN, UNK
  8. XALATAN [Concomitant]
     Dosage: UNK UKN, UNK

REACTIONS (1)
  - Abdominal wall haematoma [Recovered/Resolved]
